FAERS Safety Report 5866899-7 (Version None)
Quarter: 2008Q3

REPORT INFORMATION
  Report Type: 
  Country: None (occurrence: None)
  Receive Date: 20080902
  Receipt Date: 20080731
  Transmission Date: 20090109
  Serious: No
  Sender: FDA-Public Use
  Company Number: US-BAYER-200811613BCC

PATIENT
  Age: 22 Year
  Sex: Female

DRUGS (2)
  1. ALEVE (CAPLET) [Suspect]
     Indication: SELF INJURIOUS BEHAVIOUR
     Dosage: AS USED: 5280 MG  UNIT DOSE: 220 MG
     Route: 048
     Dates: start: 20080421
  2. ALLERGY MEDICATION [Concomitant]

REACTIONS (2)
  - NAUSEA [None]
  - RETCHING [None]
